FAERS Safety Report 7230365-7 (Version None)
Quarter: 2011Q1

REPORT INFORMATION
  Report Type: 
  Country: None (occurrence: None)
  Receive Date: 20110117
  Receipt Date: 20110107
  Transmission Date: 20110831
  Serious: Yes (Other)
  Sender: FDA-Public Use
  Company Number: PHHY2011US01684

PATIENT
  Sex: Female
  Weight: 101.6 kg

DRUGS (1)
  1. EXJADE [Suspect]
     Indication: THALASSAEMIA
     Dosage: 125 MG, DAILY
     Route: 048
     Dates: start: 20101230, end: 20101230

REACTIONS (6)
  - BLINDNESS [None]
  - NAUSEA [None]
  - PYREXIA [None]
  - CHILLS [None]
  - FATIGUE [None]
  - GASTROINTESTINAL SOUNDS ABNORMAL [None]
